FAERS Safety Report 23842482 (Version 1)
Quarter: 2024Q2

REPORT INFORMATION
  Report Type: Spontaneous
  Country: US (occurrence: US)
  Receive Date: 20240510
  Receipt Date: 20240510
  Transmission Date: 20240716
  Serious: Yes (Other)
  Sender: FDA-Public Use
  Company Number: US-BAYER-2024A068057

PATIENT
  Sex: Male

DRUGS (3)
  1. ASPIRIN [Suspect]
     Active Substance: ASPIRIN
     Indication: Thrombolysis
  2. ENOXAPARIN [Concomitant]
     Active Substance: ENOXAPARIN
     Indication: Thrombolysis
     Dosage: 40 MG, QD
  3. BETAMETHASONE [Concomitant]
     Active Substance: BETAMETHASONE\BETAMETHASONE DIPROPIONATE

REACTIONS (2)
  - Premature baby [None]
  - Foetal exposure during pregnancy [None]
